FAERS Safety Report 4917655-5 (Version None)
Quarter: 2006Q1

REPORT INFORMATION
  Report Type: 
  Country: None (occurrence: None)
  Receive Date: 20060221
  Receipt Date: 20051104
  Transmission Date: 20060701
  Serious: Yes (Hospitalization)
  Sender: FDA-Public Use
  Company Number: GB-AMGEN-UK156884

PATIENT
  Sex: Female
  Weight: 58.4 kg

DRUGS (7)
  1. NEULASTA [Suspect]
     Indication: CHEMOTHERAPY
     Route: 058
     Dates: start: 20050707
  2. CYCLOPHOSPHAMIDE [Concomitant]
     Route: 065
  3. METHOTREXATE [Concomitant]
     Route: 065
  4. FLUOROURACIL [Concomitant]
     Route: 065
  5. DEXAMETHASONE SODIUM PHOSPHATE [Concomitant]
     Route: 048
     Dates: start: 20050929
  6. FOLINIC ACID [Concomitant]
     Route: 048
     Dates: start: 20050930, end: 20051001
  7. GRANISETRON [Concomitant]
     Route: 048
     Dates: start: 20050929

REACTIONS (5)
  - CHILLS [None]
  - DYSPNOEA [None]
  - FEBRILE NEUTROPENIA [None]
  - PHARYNGOLARYNGEAL PAIN [None]
  - TACHYCARDIA [None]
